FAERS Safety Report 21195222 (Version 1)
Quarter: 2022Q3

REPORT INFORMATION
  Report Type: Spontaneous
  Country: US (occurrence: None)
  Receive Date: 20220809
  Receipt Date: 20220809
  Transmission Date: 20221027
  Serious: Yes (Hospitalization)
  Sender: FDA-Public Use
  Company Number: None

PATIENT
  Age: 72 Year
  Sex: Female

DRUGS (19)
  1. AMBRISENTAN [Suspect]
     Active Substance: AMBRISENTAN
     Indication: Pulmonary hypertension
     Dosage: FREQUENCY : DAILY;?
     Route: 048
     Dates: start: 20200316, end: 20220707
  2. SILDENAFIL [Concomitant]
     Active Substance: SILDENAFIL
  3. OMEPRAZOLE [Concomitant]
     Active Substance: OMEPRAZOLE
  4. METOLAZONE [Concomitant]
     Active Substance: METOLAZONE
  5. ALBUTEROL SULFATE [Concomitant]
     Active Substance: ALBUTEROL SULFATE
  6. WIXELA [Concomitant]
  7. DILTIAZEM [Concomitant]
  8. ASPIRIN [Concomitant]
     Active Substance: ASPIRIN
  9. CYANOCOBALAMIN [Concomitant]
     Active Substance: CYANOCOBALAMIN
  10. LEVOTHYROXINE [Concomitant]
     Active Substance: LEVOTHYROXINE
  11. FUROSEMIDE [Concomitant]
     Active Substance: FUROSEMIDE
  12. SPIRONOLACTONE [Concomitant]
     Active Substance: SPIRONOLACTONE
  13. PRADAXA [Concomitant]
     Active Substance: DABIGATRAN ETEXILATE MESYLATE
  14. DIGOXIN [Concomitant]
     Active Substance: DIGOXIN
  15. ATORVASTATIN [Concomitant]
     Active Substance: ATORVASTATIN
  16. POTASSIUM CITRATE [Concomitant]
     Active Substance: POTASSIUM CITRATE
  17. IPRATROPIUM [Concomitant]
  18. VITAMIN D3 [Concomitant]
     Active Substance: CHOLECALCIFEROL
  19. FLAXSEED OIL [Concomitant]

REACTIONS (7)
  - Acute respiratory failure [None]
  - Cardiac failure acute [None]
  - Acute respiratory failure [None]
  - Blood loss anaemia [None]
  - Haemolysis [None]
  - Mitral valve disease [None]
  - Therapy interrupted [None]

NARRATIVE: CASE EVENT DATE: 20220707
